FAERS Safety Report 8608036-1 (Version None)
Quarter: 2012Q3

REPORT INFORMATION
  Report Type: 
  Country: None (occurrence: None)
  Receive Date: 20120821
  Receipt Date: 20120816
  Transmission Date: 20120928
  Serious: Yes (Life-Threatening, Hospitalization)
  Sender: FDA-Public Use
  Company Number: US-ASTRAZENECA-2012SE57156

PATIENT
  Age: 47 Year
  Sex: Female

DRUGS (13)
  1. SEROQUEL [Suspect]
     Indication: BIPOLAR DISORDER
     Route: 048
  2. CYMBALTA [Concomitant]
  3. FISH OIL [Concomitant]
  4. SEROQUEL [Suspect]
     Indication: MANIA
     Route: 048
  5. SEROQUEL [Suspect]
     Indication: DEPRESSION
     Route: 048
  6. KLONOPIN [Concomitant]
  7. FLAXSEED OIL [Concomitant]
  8. CELEXA [Concomitant]
  9. METFORMIN HCL [Concomitant]
  10. GLYBURIDE [Concomitant]
  11. PRILOSEC OTC [Suspect]
     Route: 048
  12. AMBIEN [Concomitant]
  13. BENADRYL [Concomitant]

REACTIONS (8)
  - ADVERSE EVENT [None]
  - DRUG DOSE OMISSION [None]
  - SUICIDE ATTEMPT [None]
  - MALAISE [None]
  - COMMUNICATION DISORDER [None]
  - POST-TRAUMATIC STRESS DISORDER [None]
  - SOCIAL PHOBIA [None]
  - CRYING [None]
